FAERS Safety Report 5334305-7 (Version None)
Quarter: 2007Q2

REPORT INFORMATION
  Report Type: 
  Country: None (occurrence: None)
  Receive Date: 20070525
  Receipt Date: 20070516
  Transmission Date: 20071010
  Serious: Yes (Hospitalization, Disabling, Other)
  Sender: FDA-Public Use
  Company Number: PHEH2007US05784

PATIENT
  Age: 46 Year
  Sex: Female
  Weight: 52.607 kg

DRUGS (2)
  1. ZELNORM [Suspect]
     Indication: IRRITABLE BOWEL SYNDROME
     Dosage: 1 TABLET, BID
     Route: 048
     Dates: start: 20020101, end: 20070415
  2. ALLERGY MEDICATION [Concomitant]
     Route: 048

REACTIONS (17)
  - ARTHRALGIA [None]
  - ASTHENIA [None]
  - CARDIAC STRESS TEST NORMAL [None]
  - CHEST PAIN [None]
  - DISORIENTATION [None]
  - DIZZINESS [None]
  - DYSPNOEA [None]
  - GAIT DISTURBANCE [None]
  - HYPERSENSITIVITY [None]
  - INFLUENZA LIKE ILLNESS [None]
  - MENTAL IMPAIRMENT [None]
  - MUSCULAR WEAKNESS [None]
  - NASOPHARYNGITIS [None]
  - NERVOUS SYSTEM DISORDER [None]
  - PAINFUL RESPIRATION [None]
  - PRODUCTIVE COUGH [None]
  - TRANSIENT ISCHAEMIC ATTACK [None]
